FAERS Safety Report 13266181 (Version 9)
Quarter: 2017Q4

REPORT INFORMATION
  Report Type: Spontaneous
  Country: US (occurrence: US)
  Receive Date: 20170223
  Receipt Date: 20171013
  Transmission Date: 20180320
  Serious: Yes (Death, Hospitalization, Other)
  Sender: FDA-Public Use
  Company Number: US-ACTELION-A-US2017-150021

PATIENT
  Age: 76 Year
  Sex: Female

DRUGS (15)
  1. VELETRI [Suspect]
     Active Substance: EPOPROSTENOL
     Dosage: 14.5 NG/KG, PER MIN
     Route: 042
  2. OPSUMIT [Suspect]
     Active Substance: MACITENTAN
     Indication: PULMONARY ARTERIAL HYPERTENSION
     Dosage: 10 MG, QD
     Route: 048
     Dates: start: 20170316
  3. METOPROLOL. [Concomitant]
     Active Substance: METOPROLOL
  4. LEVOTHYROXINE. [Concomitant]
     Active Substance: LEVOTHYROXINE
  5. LETAIRIS [Suspect]
     Active Substance: AMBRISENTAN
     Indication: PULMONARY ARTERIAL HYPERTENSION
     Dosage: 10 MG, QD
     Route: 048
     Dates: start: 20140613
  6. FUROSEMIDE. [Concomitant]
     Active Substance: FUROSEMIDE
  7. VELETRI [Suspect]
     Active Substance: EPOPROSTENOL
     Dosage: 14.75 NG/KG, PER MIN
     Route: 042
     Dates: start: 201709, end: 201709
  8. ADCIRCA [Suspect]
     Active Substance: TADALAFIL
     Indication: PRODUCT USED FOR UNKNOWN INDICATION
     Route: 048
  9. REMODULIN [Suspect]
     Active Substance: TREPROSTINIL
     Indication: PULMONARY ARTERIAL HYPERTENSION
     Dosage: 17.32 NG/KG, UNK
     Route: 058
     Dates: start: 20160802
  10. REMODULIN [Suspect]
     Active Substance: TREPROSTINIL
     Dosage: 5 NG/KG, UNK
     Route: 058
     Dates: start: 20160214
  11. VELETRI [Suspect]
     Active Substance: EPOPROSTENOL
     Indication: PULMONARY ARTERIAL HYPERTENSION
     Dosage: UNK
     Route: 042
  12. POTASSIUM [Concomitant]
     Active Substance: POTASSIUM
  13. VELETRI [Suspect]
     Active Substance: EPOPROSTENOL
     Dosage: 12 NG/KG, PER MIN
     Route: 042
     Dates: start: 20170118
  14. VELETRI [Suspect]
     Active Substance: EPOPROSTENOL
     Dosage: 11.5 NG/KG, PER MIN
     Route: 042
  15. CRESTOR [Concomitant]
     Active Substance: ROSUVASTATIN CALCIUM

REACTIONS (11)
  - Diarrhoea [Unknown]
  - Hypoxia [Unknown]
  - Pneumonia viral [Unknown]
  - Malaise [Unknown]
  - Dyspnoea [Unknown]
  - Weight decreased [Unknown]
  - Feeling abnormal [Unknown]
  - Fluid retention [Unknown]
  - Cardiac arrest [Fatal]
  - Insomnia [Unknown]
  - Fluid overload [Unknown]

NARRATIVE: CASE EVENT DATE: 20170118
